FAERS Safety Report 9272562 (Version 1)
Quarter: 2013Q2

REPORT INFORMATION
  Report Type: Spontaneous
  Country: US (occurrence: US)
  Receive Date: 20130506
  Receipt Date: 20130506
  Transmission Date: 20140414
  Serious: No
  Sender: FDA-Public Use
  Company Number: US-ASTRAZENECA-2012SE86547

PATIENT
  Sex: Male

DRUGS (4)
  1. PRILOSEC OTC [Suspect]
     Dosage: UNKNOWN
     Route: 048
  2. AVODART [Concomitant]
     Dosage: UNKNOWN
  3. XANAX [Concomitant]
     Dosage: UNKNOWN
  4. MIRALAX [Concomitant]
     Dosage: UNKNOWN

REACTIONS (3)
  - Dry mouth [Unknown]
  - Dysgeusia [Unknown]
  - Inappropriate schedule of drug administration [Unknown]
